FAERS Safety Report 20013731 (Version 2)
Quarter: 2021Q4

REPORT INFORMATION
  Report Type: Spontaneous
  Country: GB (occurrence: GB)
  Receive Date: 20211029
  Receipt Date: 20211106
  Transmission Date: 20220304
  Serious: Yes (Disabling, Other)
  Sender: FDA-Public Use
  Company Number: None

PATIENT
  Age: 3 Year
  Sex: Female
  Weight: 21 kg

DRUGS (2)
  1. MONTELUKAST [Suspect]
     Active Substance: MONTELUKAST SODIUM
     Indication: Ill-defined disorder
     Route: 048
     Dates: start: 20160601, end: 20161020
  2. MONTELUKAST [Suspect]
     Active Substance: MONTELUKAST SODIUM
     Indication: Paranasal sinus inflammation

REACTIONS (2)
  - Hallucination [Recovered/Resolved with Sequelae]
  - Nightmare [Recovered/Resolved]

NARRATIVE: CASE EVENT DATE: 20161012
